FAERS Safety Report 9452740 (Version 2)
Quarter: 2013Q3

REPORT INFORMATION
  Report Type: Report from Study
  Country: BR (occurrence: BR)
  Receive Date: 20130812
  Receipt Date: 20130906
  Transmission Date: 20140515
  Serious: Yes (Hospitalization, Other)
  Sender: FDA-Public Use
  Company Number: PHHY2013BR085779

PATIENT
  Sex: Female

DRUGS (4)
  1. DIOVAN AMLO FIX [Suspect]
     Indication: HYPERTENSION
     Dosage: 2 DF (160/5MG), DAILY
     Route: 048
     Dates: end: 2012
  2. DIOVAN TRIPLE [Suspect]
     Indication: HYPERTENSION
     Dosage: 2 DF (160/5/12.5 MG), DAILY
     Route: 048
  3. ATENOLOL [Suspect]
     Indication: HYPERTENSION
     Dosage: 2 DF, DAILY
     Route: 048
  4. OMEPRAZOLE [Concomitant]
     Indication: GASTRITIS
     Dosage: 20 M, DAILY
     Route: 048

REACTIONS (5)
  - Renal pain [Recovered/Resolved]
  - Blood pressure increased [Recovered/Resolved]
  - Inguinal hernia [Unknown]
  - Arthropathy [Unknown]
  - Nausea [Recovered/Resolved]
